FAERS Safety Report 9282970 (Version 1)
Quarter: 2013Q2

REPORT INFORMATION
  Report Type: Spontaneous
  Country: US (occurrence: US)
  Receive Date: 20130510
  Receipt Date: 20130510
  Transmission Date: 20140414
  Serious: No
  Sender: FDA-Public Use
  Company Number: US-GLAXOSMITHKLINE-A0918547A

PATIENT
  Age: 53 Year
  Sex: Female
  Weight: 58.2 kg

DRUGS (15)
  1. TYKERB [Suspect]
     Indication: PRODUCT USED FOR UNKNOWN INDICATION
     Dosage: 250MG SEE DOSAGE TEXT
     Route: 048
  2. DOXIL [Suspect]
     Indication: PRODUCT USED FOR UNKNOWN INDICATION
  3. IBUPROFEN [Concomitant]
  4. ATIVAN [Concomitant]
  5. AMBIEN [Concomitant]
  6. BENADRYL [Concomitant]
  7. IMODIUM AD [Concomitant]
  8. VALACYCLOVIR [Concomitant]
  9. VICODIN [Concomitant]
  10. KEPPRA [Concomitant]
  11. FLAX SEED OIL [Concomitant]
  12. VITAMIN E [Concomitant]
  13. DECADRON [Concomitant]
  14. UNSPECIFIED THYROID MEDICATION [Concomitant]
     Indication: HYPERTHYROIDISM
  15. CYTOMEL [Concomitant]

REACTIONS (18)
  - Rash erythematous [Unknown]
  - Myalgia [Unknown]
  - Contusion [Recovered/Resolved]
  - Constipation [Unknown]
  - Decreased appetite [Unknown]
  - Dizziness [Unknown]
  - Nasopharyngitis [Recovering/Resolving]
  - Abdominal discomfort [Recovering/Resolving]
  - Onychalgia [Recovering/Resolving]
  - Onycholysis [Recovering/Resolving]
  - Herpes zoster [Recovering/Resolving]
  - Asthenia [Recovering/Resolving]
  - Affect lability [Recovering/Resolving]
  - Diarrhoea [Unknown]
  - Nausea [Unknown]
  - Dry eye [Unknown]
  - Headache [Unknown]
  - Rash [Unknown]
